FAERS Safety Report 5407491-8 (Version None)
Quarter: 2007Q3

REPORT INFORMATION
  Report Type: 
  Country: None (occurrence: None)
  Receive Date: 20070807
  Receipt Date: 20070726
  Transmission Date: 20080115
  Serious: Yes (Other)
  Sender: FDA-Public Use
  Company Number: US-PFIZER INC-2007063286

PATIENT
  Sex: Female
  Weight: 68 kg

DRUGS (3)
  1. CHANTIX [Suspect]
     Indication: SMOKING CESSATION THERAPY
     Route: 048
  2. PERCOCET [Concomitant]
  3. WARFARIN SODIUM [Concomitant]

REACTIONS (4)
  - DIPLOPIA [None]
  - SMOKER [None]
  - SOMNAMBULISM [None]
  - SYNCOPE [None]
